FAERS Safety Report 23395287 (Version 1)
Quarter: 2024Q1

REPORT INFORMATION
  Report Type: Spontaneous
  Country: US (occurrence: US)
  Receive Date: 20240112
  Receipt Date: 20240112
  Transmission Date: 20240410
  Serious: No
  Sender: FDA-Public Use
  Company Number: US-002147023-NVSC2024US006919

PATIENT
  Sex: Female

DRUGS (4)
  1. TAFINLAR [Suspect]
     Active Substance: DABRAFENIB MESYLATE
     Indication: Malignant melanoma
     Dosage: 150 MG, BID
     Route: 048
     Dates: start: 202312
  2. TAFINLAR [Suspect]
     Active Substance: DABRAFENIB MESYLATE
     Indication: Neoplasm malignant
  3. MEKINIST [Suspect]
     Active Substance: TRAMETINIB DIMETHYL SULFOXIDE
     Indication: Malignant melanoma
     Dosage: 2 MG, QD
     Route: 065
     Dates: start: 202312
  4. MEKINIST [Suspect]
     Active Substance: TRAMETINIB DIMETHYL SULFOXIDE
     Indication: Neoplasm malignant

REACTIONS (1)
  - Urticaria [Unknown]
